FAERS Safety Report 7517923-7 (Version None)
Quarter: 2011Q2

REPORT INFORMATION
  Report Type: 
  Country: None (occurrence: None)
  Receive Date: 20110523
  Receipt Date: 20110511
  Transmission Date: 20111010
  Serious: Yes (Disabling, Other)
  Sender: FDA-Public Use
  Company Number: ACO_23229_2011

PATIENT
  Age: 62 Year
  Sex: Female

DRUGS (9)
  1. CEREFOLIN NAC (CALCIUM MEFOLINATE, CYANOCOBALAMIN, PYRIDOXINE, RIBOFLA [Concomitant]
  2. VOLTAREN EMULGEL (DICLOFENAC DIETHYLAMINE) [Concomitant]
  3. GABAPENTIN [Concomitant]
  4. CADUET (AMLODIPINE BESILATE, ATROVASTATIN CALCIUM) [Concomitant]
  5. TYSABRI [Concomitant]
  6. AMPYRA [Suspect]
     Indication: PRODUCT USED FOR UNKNOWN INDICATION
     Dosage: 10 MG, BID
     Dates: start: 20100801, end: 20110101
  7. L-THYROXINE /00068001/ (LEVOTHYROXINE) [Concomitant]
  8. AVONEX [Concomitant]
  9. METANX (CALCIUM MEFOLINATE, PYRIDOXINE HYDROCHLORIDE, VITAMIN B12 NOS) [Concomitant]

REACTIONS (5)
  - ABASIA [None]
  - PAIN IN EXTREMITY [None]
  - CONSTIPATION [None]
  - DIARRHOEA [None]
  - MULTIPLE SCLEROSIS RELAPSE [None]
